FAERS Safety Report 10785361 (Version 1)
Quarter: 2015Q1

REPORT INFORMATION
  Report Type: Spontaneous
  Country: US (occurrence: None)
  Receive Date: 20150210
  Receipt Date: 20150210
  Transmission Date: 20150721
  Serious: Yes (Death)
  Sender: FDA-Public Use
  Company Number: None

PATIENT
  Age: 99 Year
  Sex: Female
  Weight: 44.4 kg

DRUGS (5)
  1. FECAL MICROBIOTIC TRANSPLANT [Suspect]
     Active Substance: FECAL MICROBIOTA
     Indication: CLOSTRIDIUM DIFFICILE INFECTION
     Dosage: 300 ML ONCE COLONOSCOPY
     Dates: start: 20140723
  2. VITAMIN B12 [Concomitant]
     Active Substance: CYANOCOBALAMIN
  3. DEPAKOTE [Concomitant]
     Active Substance: DIVALPROEX SODIUM
  4. TORSEMIDE. [Concomitant]
     Active Substance: TORSEMIDE
  5. FUROSEMIDE. [Concomitant]
     Active Substance: FUROSEMIDE

REACTIONS (9)
  - Complex partial seizures [None]
  - Dysphagia [None]
  - Flatulence [None]
  - Fatigue [None]
  - Body temperature increased [None]
  - Pulmonary congestion [None]
  - Mental status changes [None]
  - Lethargy [None]
  - Dehydration [None]
